FAERS Safety Report 23465846 (Version 2)
Quarter: 2024Q1

REPORT INFORMATION
  Report Type: Spontaneous
  Country: JP (occurrence: JP)
  Receive Date: 20240201
  Receipt Date: 20240208
  Transmission Date: 20240410
  Serious: Yes (Other)
  Sender: FDA-Public Use
  Company Number: JP-GILEAD-2024-0659507

PATIENT
  Age: 104 Year
  Sex: Female

DRUGS (3)
  1. VEKLURY [Suspect]
     Active Substance: REMDESIVIR
     Indication: Product used for unknown indication
     Dosage: UNK
     Route: 041
  2. VEKLURY [Suspect]
     Active Substance: REMDESIVIR
     Dosage: 200 MG
     Route: 065
  3. VEKLURY [Suspect]
     Active Substance: REMDESIVIR
     Dosage: 100 MG
     Route: 065

REACTIONS (3)
  - Pneumonia [Recovered/Resolved]
  - Inflammation [Unknown]
  - Incorrect dose administered [Recovered/Resolved]
